FAERS Safety Report 17857799 (Version 1)
Quarter: 2020Q2

REPORT INFORMATION
  Report Type: Spontaneous
  Country: CA (occurrence: CA)
  Receive Date: 20200604
  Receipt Date: 20200604
  Transmission Date: 20200714
  Serious: Yes (Hospitalization)
  Sender: FDA-Public Use
  Company Number: CA-ROCHE-2611759

PATIENT
  Age: 72 Year
  Sex: Female

DRUGS (13)
  1. METHYLPREDNISOLONE SODIUM SUCCINATE. [Suspect]
     Active Substance: METHYLPREDNISOLONE SODIUM SUCCINATE
     Indication: PREMEDICATION
     Route: 042
  2. ACETAMINOPHEN. [Concomitant]
     Active Substance: ACETAMINOPHEN
     Indication: PREMEDICATION
     Route: 048
  3. PROCHLORPERAZINE. [Concomitant]
     Active Substance: PROCHLORPERAZINE
  4. TEMODAL [Concomitant]
     Active Substance: TEMOZOLOMIDE
  5. AVASTIN [Suspect]
     Active Substance: BEVACIZUMAB
     Indication: GLIOMA
     Route: 042
  6. RANITIDINE. [Concomitant]
     Active Substance: RANITIDINE
  7. SENOKOT [Concomitant]
     Active Substance: SENNOSIDES
  8. VALPROIC ACID. [Concomitant]
     Active Substance: VALPROIC ACID
  9. XARELTO [Concomitant]
     Active Substance: RIVAROXABAN
  10. DEXAMETHASONE. [Concomitant]
     Active Substance: DEXAMETHASONE
  11. APO-ESCITALOPRAM [Concomitant]
     Active Substance: ESCITALOPRAM OXALATE
  12. CLONAZEPAM. [Concomitant]
     Active Substance: CLONAZEPAM
  13. DAPSONE. [Concomitant]
     Active Substance: DAPSONE

REACTIONS (5)
  - Complication of device insertion [Recovered/Resolved]
  - Rectal haemorrhage [Recovered/Resolved]
  - Oxygen saturation decreased [Recovered/Resolved]
  - Ulcer [Recovered/Resolved]
  - Infusion related reaction [Recovered/Resolved]
